FAERS Safety Report 14563219 (Version 4)
Quarter: 2018Q2

REPORT INFORMATION
  Report Type: Report from Study
  Country: CN (occurrence: CN)
  Receive Date: 20180222
  Receipt Date: 20180406
  Transmission Date: 20180711
  Serious: Yes (Hospitalization)
  Sender: FDA-Public Use
  Company Number: CN-ASTRAZENECA-2018SE15182

PATIENT
  Age: 60 Year
  Sex: Female
  Weight: 72 kg

DRUGS (5)
  1. ESTAZOLAM. [Concomitant]
     Active Substance: ESTAZOLAM
     Indication: INSOMNIA
     Route: 065
     Dates: start: 20171026
  2. FULVESTARANT [Suspect]
     Active Substance: FULVESTRANT
     Indication: BREAST CANCER METASTATIC
     Dosage: 500 MG ON DAYS 1, 15, 29 AND ONCE MONTHLY THEREAFTER.
     Route: 030
     Dates: start: 20171106, end: 20180108
  3. ZOLEDRONIC ACID [Concomitant]
     Active Substance: ZOLEDRONIC ACID
     Indication: BREAST CANCER
     Route: 065
     Dates: start: 20171107
  4. PLACEBO [Suspect]
     Active Substance: UNSPECIFIED INGREDIENT
     Indication: BREAST CANCER METASTATIC
     Dosage: EVERY 12 HOURS
     Route: 048
     Dates: start: 20171106, end: 20180111
  5. UNION ASPIRIN [Concomitant]
     Indication: CORONARY ARTERY DISEASE
     Route: 065
     Dates: start: 200712

REACTIONS (2)
  - Transient ischaemic attack [Recovering/Resolving]
  - Facial paralysis [Recovering/Resolving]

NARRATIVE: CASE EVENT DATE: 20180117
